FAERS Safety Report 25238740 (Version 1)
Quarter: 2025Q2

REPORT INFORMATION
  Report Type: Spontaneous
  Country: US (occurrence: US)
  Receive Date: 20250425
  Receipt Date: 20250425
  Transmission Date: 20250717
  Serious: Yes (Hospitalization)
  Sender: MERCK SHARP & DOHME LLC
  Company Number: US-009507513-2279793

PATIENT
  Sex: Male

DRUGS (1)
  1. KEYTRUDA [Suspect]
     Active Substance: PEMBROLIZUMAB
     Route: 065

REACTIONS (5)
  - Eyelid ptosis [Unknown]
  - Adverse drug reaction [Unknown]
  - Cardiac disorder [Unknown]
  - Lung disorder [Unknown]
  - Nervous system disorder [Unknown]
